FAERS Safety Report 6371242-3 (Version None)
Quarter: 2009Q3

REPORT INFORMATION
  Report Type: 
  Country: None (occurrence: None)
  Receive Date: 20090923
  Receipt Date: 20071109
  Transmission Date: 20100115
  Serious: Yes (Other)
  Sender: FDA-Public Use
  Company Number: US-ASTRAZENECA-2007UW03866

PATIENT
  Age: 867 Month
  Sex: Male
  Weight: 117.9 kg

DRUGS (14)
  1. SEROQUEL [Suspect]
     Indication: SLEEP DISORDER
     Route: 048
     Dates: start: 20011201
  2. SEROQUEL [Suspect]
     Route: 048
     Dates: start: 20051017
  3. COZAAR [Concomitant]
     Route: 065
  4. K-DUR [Concomitant]
     Route: 065
  5. COLACE [Concomitant]
     Route: 065
  6. ASPIRIN [Concomitant]
     Route: 065
  7. CELEBREX [Concomitant]
     Route: 065
  8. COREG [Concomitant]
     Route: 048
  9. CYMBALTA [Concomitant]
     Route: 048
  10. COUMADIN [Concomitant]
     Route: 048
  11. LASIX [Concomitant]
     Route: 048
  12. BENAZEPRIL HYDROCHLORIDE [Concomitant]
     Route: 048
  13. SOTALOL HYDROCHLORIDE [Concomitant]
     Route: 048
  14. LIPITOR [Concomitant]
     Route: 048

REACTIONS (3)
  - DIABETIC KETOACIDOSIS [None]
  - TYPE 1 DIABETES MELLITUS [None]
  - TYPE 2 DIABETES MELLITUS [None]
